FAERS Safety Report 23738736 (Version 1)
Quarter: 2024Q2

REPORT INFORMATION
  Report Type: Spontaneous
  Country: US (occurrence: US)
  Receive Date: 20240413
  Receipt Date: 20240413
  Transmission Date: 20240716
  Serious: Yes (Life-Threatening, Hospitalization, Other)
  Sender: FDA-Public Use
  Company Number: None

PATIENT
  Age: 45 Year
  Sex: Female

DRUGS (1)
  1. HEPARIN [Suspect]
     Active Substance: HEPARIN SODIUM
     Indication: Product used for unknown indication

REACTIONS (5)
  - Pulmonary embolism [Recovering/Resolving]
  - Right ventricular failure [Recovering/Resolving]
  - Hypoxia [Recovering/Resolving]
  - Heparin-induced thrombocytopenia [Recovering/Resolving]
  - Peripheral artery thrombosis [Recovering/Resolving]
